FAERS Safety Report 6911609-5 (Version None)
Quarter: 2010Q3

REPORT INFORMATION
  Report Type: 
  Country: None (occurrence: None)
  Receive Date: 20100806
  Receipt Date: 20100729
  Transmission Date: 20110219
  Serious: Yes (Hospitalization)
  Sender: FDA-Public Use
  Company Number: FR-KINGPHARMUSA00001-K201000948

PATIENT
  Age: 89 Year
  Sex: Male

DRUGS (15)
  1. ALTACE [Suspect]
     Dosage: 1.25 MG, QD
     Route: 048
     Dates: start: 20100505, end: 20100506
  2. EQUANIL [Suspect]
     Dosage: 3 DF, QD
     Route: 048
     Dates: start: 20100503, end: 20100508
  3. OXYCODONE HCL [Suspect]
     Dosage: 10 MG, QD
     Route: 048
     Dates: start: 20100505, end: 20100507
  4. OXYCONTIN [Suspect]
     Dosage: 20 MG, QD
     Route: 048
     Dates: start: 20100505, end: 20100507
  5. DUPHALAC [Suspect]
     Dosage: 2 TBSP, UNK
     Dates: start: 20100506, end: 20100512
  6. CEFTRIAXONE [Suspect]
     Dosage: 1 G, QD
     Route: 041
     Dates: start: 20100429, end: 20100507
  7. CORDARONE [Concomitant]
  8. COZAAR [Concomitant]
  9. LASIX [Concomitant]
  10. IPRATROPIUM BROMIDE [Concomitant]
  11. ACETAMINOPHEN [Concomitant]
  12. POLARAMINE [Concomitant]
  13. SPECIAFOLDINE [Concomitant]
  14. TARDYFERON [Concomitant]
  15. XYZAL [Concomitant]

REACTIONS (1)
  - CONFUSIONAL STATE [None]
